FAERS Safety Report 9789826 (Version 2)
Quarter: 2016Q1

REPORT INFORMATION
  Report Type: Report from Study
  Country: US (occurrence: US)
  Receive Date: 20131231
  Receipt Date: 20160203
  Transmission Date: 20160526
  Serious: Yes (Other)
  Sender: FDA-Public Use
  Company Number: US-ROCHE-1326223

PATIENT
  Age: 36 Year
  Sex: Female

DRUGS (6)
  1. ZYRTEC [Concomitant]
     Active Substance: CETIRIZINE HYDROCHLORIDE
     Route: 065
  2. EPIPEN [Concomitant]
     Active Substance: EPINEPHRINE
  3. SINGULAIR [Concomitant]
     Active Substance: MONTELUKAST SODIUM
     Route: 065
  4. LASIX [Concomitant]
     Active Substance: FUROSEMIDE
  5. MEDROL [Concomitant]
     Active Substance: METHYLPREDNISOLONE
     Route: 065
  6. XOLAIR [Suspect]
     Active Substance: OMALIZUMAB
     Indication: ASTHMA
     Route: 058

REACTIONS (10)
  - Cough [Unknown]
  - Depression [Unknown]
  - Gastrooesophageal reflux disease [Unknown]
  - Tonsillar disorder [Unknown]
  - Wheezing [Unknown]
  - Allergic granulomatous angiitis [Unknown]
  - Oedema peripheral [Unknown]
  - Respiratory symptom [Unknown]
  - Atopy [Unknown]
  - Rhonchi [Unknown]

NARRATIVE: CASE EVENT DATE: 20051025
